FAERS Safety Report 24910564 (Version 2)
Quarter: 2025Q1

REPORT INFORMATION
  Report Type: Spontaneous
  Country: RO (occurrence: RO)
  Receive Date: 20250131
  Receipt Date: 20250210
  Transmission Date: 20250409
  Serious: Yes (Hospitalization, Other)
  Sender: MYLAN
  Company Number: RO-CHEPLA-2025000862

PATIENT
  Age: 55 Year
  Sex: Female

DRUGS (4)
  1. DOXORUBICIN [Suspect]
     Active Substance: DOXORUBICIN
     Route: 065
  2. PACLITAXEL [Suspect]
     Active Substance: PACLITAXEL
     Route: 065
  3. CARBOPLATIN [Suspect]
     Active Substance: CARBOPLATIN
     Indication: Breast cancer stage III
     Route: 065
  4. CYCLOPHOSPHAMIDE [Concomitant]
     Active Substance: CYCLOPHOSPHAMIDE
     Route: 065

REACTIONS (1)
  - Cardiac tamponade [Recovered/Resolved]
